FAERS Safety Report 15996353 (Version 1)
Quarter: 2019Q1

REPORT INFORMATION
  Report Type: Spontaneous
  Country: US (occurrence: US)
  Receive Date: 20190131
  Receipt Date: 20190131
  Transmission Date: 20190418
  Serious: No
  Sender: FDA-Public Use
  Company Number: None

PATIENT
  Age: 54 Year
  Sex: Male

DRUGS (1)
  1. MAVYRET [Suspect]
     Active Substance: GLECAPREVIR\PIBRENTASVIR
     Dates: start: 20190112

REACTIONS (4)
  - Hyperhidrosis [None]
  - Hot flush [None]
  - Pain [None]
  - Nausea [None]

NARRATIVE: CASE EVENT DATE: 20190112
